FAERS Safety Report 9516345 (Version 1)
Quarter: 2013Q1

REPORT INFORMATION
  Report Type: Spontaneous
  Country: US (occurrence: None)
  Receive Date: 20130305
  Receipt Date: 20130305
  Transmission Date: 20140127
  Serious: Yes (Other)
  Sender: FDA-Public Use
  Company Number: 163-21880-12113356

PATIENT
  Age: 87 Year
  Sex: Female

DRUGS (2)
  1. REVLIMID [Suspect]
     Indication: PLASMA CELL MYELOMA
     Dosage: 28 IN 28 D
     Route: 048
     Dates: start: 20110314
  2. VICODIN [Concomitant]

REACTIONS (5)
  - Cerebrovascular accident [None]
  - Diarrhoea [None]
  - Constipation [None]
  - Fatigue [None]
  - Local swelling [None]
